FAERS Safety Report 21434818 (Version 1)
Quarter: 2022Q4

REPORT INFORMATION
  Report Type: Spontaneous
  Country: BR (occurrence: BR)
  Receive Date: 20221010
  Receipt Date: 20221010
  Transmission Date: 20230112
  Serious: Yes (Other)
  Sender: FDA-Public Use
  Company Number: BR-SA-SAC20221003001476

PATIENT
  Age: 49 Year
  Sex: Female
  Weight: 65.02 kg

DRUGS (7)
  1. LEMTRADA [Suspect]
     Active Substance: ALEMTUZUMAB
     Indication: Multiple sclerosis
     Dosage: 1 DF, QD
     Route: 042
     Dates: start: 20220919, end: 20220923
  2. BENICAR [Concomitant]
     Active Substance: OLMESARTAN MEDOXOMIL
     Dosage: 1 DF, QD
     Route: 048
  3. ZOVIRAX [Concomitant]
     Active Substance: ACYCLOVIR
     Indication: Herpes virus infection
     Dosage: UNK, BID
     Route: 048
  4. POLARAMINE [Concomitant]
     Active Substance: DEXCHLORPHENIRAMINE MALEATE
     Indication: Hypersensitivity
     Dosage: UNK, BID
     Route: 048
     Dates: start: 20220918, end: 20220926
  5. LUFTAL [DIMETICONE] [Concomitant]
     Indication: Flatulence
     Dosage: UNK
     Route: 048
     Dates: start: 20220927, end: 20220929
  6. ATIP XR [Concomitant]
     Dosage: 50 MG, HS
     Route: 048
  7. GLIFAGE [Concomitant]
     Active Substance: METFORMIN HYDROCHLORIDE
     Indication: Diabetes mellitus
     Dosage: 1 DF, QD
     Route: 048

REACTIONS (4)
  - Erythema multiforme [Recovering/Resolving]
  - Urticaria [Recovered/Resolved]
  - Infusion related reaction [Recovered/Resolved]
  - Incorrect drug administration rate [Unknown]

NARRATIVE: CASE EVENT DATE: 20220919
